FAERS Safety Report 8395173-2 (Version None)
Quarter: 2012Q1

REPORT INFORMATION
  Report Type: 
  Country: None (occurrence: None)
  Receive Date: 20120323
  Receipt Date: 20111130
  Transmission Date: 20120608
  Serious: Yes (Life-Threatening, Hospitalization, Other)
  Sender: FDA-Public Use
  Company Number: 163-21880-11031835

PATIENT
  Age: 62 Year
  Sex: Male
  Weight: 104.3273 kg

DRUGS (13)
  1. FLONASE [Concomitant]
  2. VELCADE [Concomitant]
  3. PREDNISONE TAB [Concomitant]
  4. REVLIMID [Suspect]
     Indication: MULTIPLE MYELOMA
     Dosage: 25 MG, 1 IN 1 D, PO ; 15-25MG, DAILY, PO ; 5 MG, QD X 21 DAYS, PO
     Route: 048
     Dates: start: 20100911
  5. REVLIMID [Suspect]
     Indication: MULTIPLE MYELOMA
     Dosage: 25 MG, 1 IN 1 D, PO ; 15-25MG, DAILY, PO ; 5 MG, QD X 21 DAYS, PO
     Route: 048
     Dates: start: 20110101
  6. DEXAMETHASONE [Concomitant]
  7. VICODIN [Concomitant]
  8. COREG [Concomitant]
  9. MEPRON [Concomitant]
  10. PROTONIX [Concomitant]
  11. FLUCONAZOLE [Concomitant]
  12. POTASSIUM CHLORIDE [Concomitant]
  13. LASIX [Concomitant]

REACTIONS (4)
  - ASTHENIA [None]
  - THROMBOSIS [None]
  - OEDEMA PERIPHERAL [None]
  - PULMONARY EMBOLISM [None]
